FAERS Safety Report 5050121-8 (Version None)
Quarter: 2006Q2

REPORT INFORMATION
  Report Type: 
  Country: None (occurrence: None)
  Receive Date: 20060614
  Receipt Date: 20060413
  Transmission Date: 20061013
  Serious: Yes (Other)
  Sender: FDA-Public Use
  Company Number: 444593

PATIENT
  Age: 62 Year
  Sex: Female

DRUGS (6)
  1. BONIVA [Suspect]
     Indication: OSTEOPOROSIS
     Dosage: 150 MG      1 PER MONTH     ORAL
     Route: 048
     Dates: start: 20060315
  2. AVAPRO [Concomitant]
  3. PAXIL [Concomitant]
  4. CLARITIN [Concomitant]
  5. CALCIUM (CALCIUM) [Concomitant]
  6. ESTRACE [Concomitant]

REACTIONS (13)
  - BACK PAIN [None]
  - BONE PAIN [None]
  - CHEST PAIN [None]
  - CHOKING [None]
  - COUGH [None]
  - DIARRHOEA [None]
  - DYSPNOEA [None]
  - HOT FLUSH [None]
  - LOCAL SWELLING [None]
  - NAUSEA [None]
  - PAIN IN EXTREMITY [None]
  - PHARYNGEAL OEDEMA [None]
  - SWELLING [None]
